FAERS Safety Report 5853064-2 (Version None)
Quarter: 2008Q3

REPORT INFORMATION
  Report Type: 
  Country: None (occurrence: None)
  Receive Date: 20080821
  Receipt Date: 20080808
  Transmission Date: 20090109
  Serious: Yes (Hospitalization)
  Sender: FDA-Public Use
  Company Number: US-AMGEN-US298385

PATIENT
  Sex: Male

DRUGS (37)
  1. PALIFERMIN [Suspect]
     Indication: STOMATITIS
     Route: 042
     Dates: start: 20080628
  2. CYCLOSPORINE [Suspect]
     Route: 042
     Dates: start: 20080706
  3. ACYCLOVIR [Concomitant]
     Route: 042
     Dates: start: 20080701
  4. AMITRIPTYLINE HCL [Concomitant]
     Route: 048
     Dates: start: 20080714
  5. NORVASC [Concomitant]
     Route: 048
     Dates: start: 20080706
  6. CALCIUM CARBONATE [Concomitant]
     Route: 048
     Dates: start: 20080706
  7. CEFEPIME [Concomitant]
     Route: 042
     Dates: start: 20080708
  8. CLOTRIMAZOLE [Concomitant]
     Route: 048
     Dates: start: 20080708
  9. DOCUSATE SODIUM [Concomitant]
     Route: 048
     Dates: start: 20080710
  10. BIAFINE [Concomitant]
     Route: 061
     Dates: start: 20080721
  11. EUCERIN [Concomitant]
     Route: 061
     Dates: start: 20080628
  12. NEXIUM [Concomitant]
     Route: 042
     Dates: start: 20080707
  13. IMMUNOGLOBULINS [Concomitant]
     Dates: start: 20080707
  14. MAGNESIUM SULFATE [Concomitant]
     Route: 042
     Dates: start: 20080713
  15. PENTAMIDINE [Concomitant]
     Route: 055
     Dates: start: 20080707
  16. SCOPOLAMINE [Concomitant]
     Route: 062
     Dates: start: 20080701
  17. SODIUM BICARBONATE [Concomitant]
     Route: 048
     Dates: start: 20080628
  18. CARAFATE [Concomitant]
     Route: 048
     Dates: start: 20080709
  19. TRIAMCINOLONE [Concomitant]
     Route: 061
     Dates: start: 20080711
  20. VANCOMYCIN [Concomitant]
     Route: 042
     Dates: start: 20080717
  21. VORICONAZOLE [Concomitant]
     Route: 048
     Dates: start: 20080708
  22. ZOLPIDEM [Concomitant]
     Route: 048
     Dates: start: 20080709
  23. TYLENOL [Concomitant]
     Route: 048
     Dates: start: 20080628
  24. ALBUTEROL [Concomitant]
     Route: 055
     Dates: start: 20080628
  25. BENADRYL [Concomitant]
     Route: 042
     Dates: start: 20080628
  26. HEPARIN [Concomitant]
     Route: 042
  27. HYDROMORPHONE HCL [Concomitant]
     Route: 042
     Dates: start: 20080709
  28. LEUCOVORIN CALCIUM [Concomitant]
     Route: 042
     Dates: start: 20080628, end: 20080720
  29. NARCAN [Concomitant]
     Route: 042
     Dates: start: 20080709
  30. ONDANSETRON [Concomitant]
     Route: 042
     Dates: start: 20080707
  31. CHLORASEPTIC [Concomitant]
     Route: 061
     Dates: start: 20080713
  32. PROMETHAZINE [Concomitant]
     Route: 042
     Dates: start: 20080628
  33. SODIUM CHLORIDE 0.9% [Concomitant]
     Route: 045
     Dates: start: 20080717
  34. SODIUM CHLORIDE [Concomitant]
     Route: 042
     Dates: start: 20080706
  35. METHOTREXATE SODIUM [Concomitant]
     Route: 042
     Dates: start: 20080709, end: 20080719
  36. BACTRIM DS [Concomitant]
     Route: 048
  37. MYCELEX [Concomitant]
     Route: 048

REACTIONS (1)
  - GINGIVAL HYPERPLASIA [None]
